FAERS Safety Report 6381239-5 (Version None)
Quarter: 2009Q3

REPORT INFORMATION
  Report Type: 
  Country: None (occurrence: None)
  Receive Date: 20090923
  Receipt Date: 20090911
  Transmission Date: 20100115
  Serious: Yes (Other)
  Sender: FDA-Public Use
  Company Number: BR-1170875

PATIENT
  Sex: Female

DRUGS (1)
  1. NEVANAC  (NEPAFENAC)       0.1 % OPTHALMIC SUSPENSION [Suspect]
     Indication: POSTOPERATIVE CARE
     Dosage: 1 GTT Q 12 HOURS OD
     Route: 047
     Dates: start: 20090511, end: 20090518

REACTIONS (1)
  - SCLERAL DISORDER [None]
